FAERS Safety Report 5817916-1 (Version None)
Quarter: 2008Q3

REPORT INFORMATION
  Report Type: 
  Country: None (occurrence: None)
  Receive Date: 20080722
  Receipt Date: 20070717
  Transmission Date: 20090109
  Serious: Yes (Hospitalization)
  Sender: FDA-Public Use
  Company Number: US-BAYER-US-2007-025346

PATIENT
  Age: 37 Year
  Sex: Female
  Weight: 63 kg

DRUGS (9)
  1. MAGNEVIST [Suspect]
     Indication: NUCLEAR MAGNETIC RESONANCE IMAGING
     Dosage: UNIT DOSE: 15 ML
     Route: 042
     Dates: start: 20070706, end: 20070706
  2. TOPROL-XL [Concomitant]
  3. ADVAIR DISKUS 100/50 [Concomitant]
  4. CLARINEX /USA/ [Concomitant]
  5. DILAUDID [Concomitant]
  6. ROBAXIN [Concomitant]
  7. ZANTAC [Concomitant]
  8. M.V.I. [Concomitant]
  9. FENTANYL-100 [Concomitant]
     Route: 062

REACTIONS (2)
  - DYSPNOEA [None]
  - PHLEBITIS [None]
